FAERS Safety Report 14438355 (Version 5)
Quarter: 2019Q1

REPORT INFORMATION
  Report Type: Spontaneous
  Country: US (occurrence: US)
  Receive Date: 20180125
  Receipt Date: 20190211
  Transmission Date: 20190417
  Serious: No
  Sender: FDA-Public Use
  Company Number: US-PFIZER INC-2018033140

PATIENT
  Age: 55 Year
  Sex: Female

DRUGS (2)
  1. LYRICA [Suspect]
     Active Substance: PREGABALIN
     Indication: CONGENITAL NEUROPATHY
     Dosage: 400 MG, DAILY (1 CAP IN THE AM AND AT NOON, 2 TIMES CAP AT HS)
  2. LYRICA [Suspect]
     Active Substance: PREGABALIN
     Indication: NEUROPATHY PERIPHERAL
     Dosage: 800 MG, DAILY (1 CAP IN THE AM AND AT NOON, 2 CAPS AT HS)/1 IN AM, 1 AFTERNOON AND 2 PO QHS
     Route: 048

REACTIONS (2)
  - Prescribed overdose [Unknown]
  - Drug hypersensitivity [Unknown]
